FAERS Safety Report 25353834 (Version 1)
Quarter: 2025Q2

REPORT INFORMATION
  Report Type: Spontaneous
  Country: GB (occurrence: GB)
  Receive Date: 20250523
  Receipt Date: 20250523
  Transmission Date: 20250717
  Serious: Yes (Other)
  Sender: ELI LILLY AND COMPANY
  Company Number: None

PATIENT
  Age: 41 Year
  Sex: Female
  Weight: 120 kg

DRUGS (1)
  1. MOUNJARO [Suspect]
     Active Substance: TIRZEPATIDE
     Indication: Weight control
     Route: 065
     Dates: start: 20250423, end: 20250514

REACTIONS (3)
  - Urticaria [Recovering/Resolving]
  - Paraesthesia oral [Unknown]
  - Throat tightness [Unknown]

NARRATIVE: CASE EVENT DATE: 20250514
